FAERS Safety Report 19431742 (Version 2)
Quarter: 2021Q3

REPORT INFORMATION
  Report Type: Other
  Country: US (occurrence: US)
  Receive Date: 20210618
  Receipt Date: 20210911
  Transmission Date: 20211014
  Serious: Yes (Hospitalization, Other)
  Sender: FDA-Public Use
  Company Number: US-ROCHE-2851307

PATIENT
  Sex: Male

DRUGS (1)
  1. ESBRIET [Suspect]
     Active Substance: PIRFENIDONE
     Indication: IDIOPATHIC PULMONARY FIBROSIS
     Dosage: TAKE ONE TABLET BY MOUTH THREE TIMES IN A DAY
     Route: 048

REACTIONS (4)
  - Pneumonia [Unknown]
  - Atrial fibrillation [Unknown]
  - Hypotension [Unknown]
  - Post procedural haemorrhage [Unknown]
